FAERS Safety Report 16284800 (Version 1)
Quarter: 2019Q2

REPORT INFORMATION
  Report Type: Spontaneous
  Country: US (occurrence: US)
  Receive Date: 20190402
  Receipt Date: 20190402
  Transmission Date: 20190711
  Serious: No
  Sender: FDA-Public Use
  Company Number: None

PATIENT
  Age: 59 Year
  Sex: Female

DRUGS (3)
  1. CALCIUM WITH VITAMIN D [Concomitant]
     Active Substance: CALCIUM\VITAMIN D
  2. IBRANCE [Suspect]
     Active Substance: PALBOCICLIB
     Dates: start: 20190402
  3. AROMASIN [Concomitant]
     Active Substance: EXEMESTANE

REACTIONS (2)
  - Drug ineffective [None]
  - Disease progression [None]
